FAERS Safety Report 5343860-2 (Version None)
Quarter: 2007Q2

REPORT INFORMATION
  Report Type: 
  Country: None (occurrence: None)
  Receive Date: 20070531
  Receipt Date: 20070531
  Transmission Date: 20071010
  Serious: No
  Sender: FDA-Public Use
  Company Number: None

PATIENT
  Age: 66 Year
  Sex: Male
  Weight: 86.1834 kg

DRUGS (2)
  1. RAPTIVA [Suspect]
     Indication: PSORIASIS
     Dosage: CONDITIONING DOSE, 0.62 ML ONCE SQ
     Route: 058
     Dates: start: 20070405, end: 20070405
  2. RAPTIVA [Suspect]
     Indication: PSORIASIS
     Dosage: FULL DOSE, 0.90 ML  WEEKLY  SQ
     Route: 058
     Dates: start: 20070412, end: 20070426

REACTIONS (6)
  - BRONCHITIS [None]
  - CYSTITIS [None]
  - CYTOMEGALOVIRUS CHORIORETINITIS [None]
  - EYELID INFECTION [None]
  - SINUSITIS [None]
  - VISUAL DISTURBANCE [None]
